FAERS Safety Report 16456251 (Version 1)
Quarter: 2019Q2

REPORT INFORMATION
  Report Type: Spontaneous
  Country: BR (occurrence: BR)
  Receive Date: 20190620
  Receipt Date: 20190620
  Transmission Date: 20190711
  Serious: Yes (Other)
  Sender: FDA-Public Use
  Company Number: PHHY2019BR139665

PATIENT

DRUGS (5)
  1. TRASTUZUMAB. [Suspect]
     Active Substance: TRASTUZUMAB
     Indication: HER-2 POSITIVE BREAST CANCER
     Dosage: 6 MG/KG, 4 CYCLIC (EVERY 3 WEEKS (8MG/KG AS A LOADING DOSE))
     Route: 065
  2. DOXORUBICIN [Suspect]
     Active Substance: DOXORUBICIN
     Indication: HER-2 POSITIVE BREAST CANCER
     Dosage: 60 MG/M2,4 CYCLIC (3 WEEKS)
     Route: 065
  3. DOCETAXEL. [Suspect]
     Active Substance: DOCETAXEL
     Indication: HER-2 POSITIVE BREAST CANCER
     Dosage: 100 MG/M2, 4 CYCLIC (3 WEEKS)
     Route: 065
  4. ZOLEDRONATE [Suspect]
     Active Substance: ZOLEDRONIC ACID
     Indication: HER-2 POSITIVE BREAST CANCER
     Dosage: 4 MG,8 CYCLIC (EVERY 3 WEEKS)
     Route: 065
  5. CYCLOPHOSPHAMIDE. [Suspect]
     Active Substance: CYCLOPHOSPHAMIDE
     Indication: HER-2 POSITIVE BREAST CANCER
     Dosage: 600 MG/M2, 4 CYCLIC (3 WEEKS)
     Route: 065

REACTIONS (1)
  - Mucosal inflammation [Unknown]
